FAERS Safety Report 12442624 (Version 1)
Quarter: 2016Q2

REPORT INFORMATION
  Report Type: Report from Study
  Country: NI (occurrence: NI)
  Receive Date: 20160607
  Receipt Date: 20160607
  Transmission Date: 20160815
  Serious: Yes (Hospitalization)
  Sender: FDA-Public Use
  Company Number: PHHY2016NI077377

PATIENT
  Sex: Female

DRUGS (1)
  1. GLIVEC [Suspect]
     Active Substance: IMATINIB MESYLATE
     Indication: CHRONIC MYELOID LEUKAEMIA
     Dosage: 800 MG, UNK
     Route: 065

REACTIONS (3)
  - Splenitis [Unknown]
  - Asthenia [Unknown]
  - Platelet count increased [Unknown]
